FAERS Safety Report 9713667 (Version 1)
Quarter: 2013Q4

REPORT INFORMATION
  Report Type: Spontaneous
  Country: US (occurrence: US)
  Receive Date: 20131126
  Receipt Date: 20131126
  Transmission Date: 20140711
  Serious: Yes (Other)
  Sender: FDA-Public Use
  Company Number: US-ELI_LILLY_AND_COMPANY-US201311006484

PATIENT
  Age: 69 Year
  Sex: Male

DRUGS (3)
  1. EFFIENT [Suspect]
     Indication: MYOCARDIAL INFARCTION
     Dosage: UNK
  2. COUMADIN [Concomitant]
  3. ASPIRIN [Concomitant]

REACTIONS (2)
  - Chest pain [Unknown]
  - Myocardial infarction [Unknown]
